FAERS Safety Report 19499858 (Version 2)
Quarter: 2021Q3

REPORT INFORMATION
  Report Type: Report from Study
  Country: CA (occurrence: CA)
  Receive Date: 20210706
  Receipt Date: 20210711
  Transmission Date: 20211014
  Serious: Yes (Hospitalization)
  Sender: FDA-Public Use
  Company Number: NVSC2020CA350285

PATIENT
  Age: 53 Year
  Sex: Female

DRUGS (3)
  1. MONTELUKAST [Suspect]
     Active Substance: MONTELUKAST SODIUM
     Indication: PRODUCT USED FOR UNKNOWN INDICATION
     Dosage: UNK
  2. XOLAIR [Suspect]
     Active Substance: OMALIZUMAB
     Dosage: 375 MG, Q2W
     Route: 058
     Dates: start: 20201008
  3. XOLAIR [Suspect]
     Active Substance: OMALIZUMAB
     Indication: ASTHMA
     Dosage: UNK
     Route: 065

REACTIONS (6)
  - General physical condition [Unknown]
  - Asthma [Unknown]
  - Fluid retention [Unknown]
  - Therapeutic response decreased [Unknown]
  - Anxiety [Unknown]
  - Sleep deficit [Unknown]

NARRATIVE: CASE EVENT DATE: 202001
